FAERS Safety Report 8716416 (Version 2)
Quarter: 2013Q4

REPORT INFORMATION
  Report Type: Spontaneous
  Country: US (occurrence: US)
  Receive Date: 20120810
  Receipt Date: 20131101
  Transmission Date: 20140711
  Serious: Yes (Other)
  Sender: FDA-Public Use
  Company Number: US-009507513-1207USA011840

PATIENT
  Age: 58 Year
  Sex: Male

DRUGS (1)
  1. VICTRELIS [Suspect]
     Dosage: UNK MG, UNK
     Route: 048

REACTIONS (4)
  - Pruritus [Unknown]
  - Decreased appetite [Unknown]
  - Fatigue [Unknown]
  - Dysgeusia [Unknown]
